FAERS Safety Report 21551432 (Version 2)
Quarter: 2022Q4

REPORT INFORMATION
  Report Type: Spontaneous
  Country: US (occurrence: US)
  Receive Date: 20221103
  Receipt Date: 20221117
  Transmission Date: 20230112
  Serious: Yes (Hospitalization, Other)
  Sender: FDA-Public Use
  Company Number: US-AMGEN-USASP2022186709

PATIENT

DRUGS (2)
  1. EPOETIN ALFA [Suspect]
     Active Substance: ERYTHROPOIETIN
     Indication: Anaemia
     Dosage: UNK
     Route: 065
  2. IRON [Concomitant]
     Active Substance: IRON
     Dosage: UNK, EVERY 2-4 WEEKS
     Route: 040

REACTIONS (4)
  - Cardiovascular disorder [Unknown]
  - Cardiac failure congestive [Unknown]
  - Embolism [Unknown]
  - Myocardial infarction [Unknown]
